FAERS Safety Report 6782809-2 (Version None)
Quarter: 2010Q2

REPORT INFORMATION
  Report Type: 
  Country: None (occurrence: None)
  Receive Date: 20100616
  Receipt Date: 20100601
  Transmission Date: 20101027
  Serious: Yes (Congenital Anomaly, Other)
  Sender: FDA-Public Use
  Company Number: 2010SCPR001294

PATIENT
  Age: 2 Month
  Sex: Male
  Weight: 1.5 kg

DRUGS (1)
  1. VALPROIC ACID [Suspect]
     Indication: EPILEPSY
     Dosage: , TRANSPLACENTAL
     Route: 064

REACTIONS (13)
  - CAESAREAN SECTION [None]
  - DRUG EXPOSURE VIA BREAST MILK [None]
  - FAILURE TO THRIVE [None]
  - FOETAL ANTICONVULSANT SYNDROME [None]
  - FOETAL DISTRESS SYNDROME [None]
  - INGUINAL HERNIA [None]
  - MATERNAL DRUGS AFFECTING FOETUS [None]
  - NEONATAL RESPIRATORY DISTRESS SYNDROME [None]
  - PERSISTENT LEFT SUPERIOR VENA CAVA [None]
  - PULMONARY HYPERTENSION [None]
  - REGURGITATION [None]
  - SKIN DISORDER [None]
  - SMALL FOR DATES BABY [None]
